FAERS Safety Report 6475433-2 (Version None)
Quarter: 2009Q4

REPORT INFORMATION
  Report Type: 
  Country: None (occurrence: None)
  Receive Date: 20091204
  Receipt Date: 20081230
  Transmission Date: 20100525
  Serious: No
  Sender: FDA-Public Use
  Company Number: US-AMGEN-KDL326329

PATIENT
  Sex: Male

DRUGS (1)
  1. ENBREL [Suspect]
     Indication: DRUG USE FOR UNKNOWN INDICATION
     Route: 058
     Dates: start: 20081216

REACTIONS (5)
  - BALANCE DISORDER [None]
  - COUGH [None]
  - FALL [None]
  - INFLUENZA LIKE ILLNESS [None]
  - JOINT SPRAIN [None]
